FAERS Safety Report 9780884 (Version 1)
Quarter: 2013Q4

REPORT INFORMATION
  Report Type: Spontaneous
  Country: IN (occurrence: IN)
  Receive Date: 20131224
  Receipt Date: 20131224
  Transmission Date: 20140711
  Serious: Yes (Hospitalization)
  Sender: FDA-Public Use
  Company Number: IN-DRREDDYS-USA/IND/13/0036598

PATIENT
  Age: 55 Year
  Sex: Male

DRUGS (3)
  1. RAMIPRIL [Suspect]
     Indication: MYOCARDIAL ISCHAEMIA
     Route: 065
  2. LITHIUM CARBONATE [Interacting]
     Indication: BIPOLAR DISORDER
     Route: 065
  3. CARBAMAZAPINE [Suspect]
     Indication: BIPOLAR DISORDER
     Route: 065

REACTIONS (3)
  - Sinus arrest [Recovered/Resolved]
  - Syncope [Recovered/Resolved]
  - Drug interaction [Unknown]
